FAERS Safety Report 12785848 (Version 1)
Quarter: 2016Q3

REPORT INFORMATION
  Report Type: Report from Study
  Country: US (occurrence: US)
  Receive Date: 20160927
  Receipt Date: 20160927
  Transmission Date: 20161109
  Serious: Yes (Other)
  Sender: FDA-Public Use
  Company Number: US-BAYER-2016-161503

PATIENT
  Sex: Male
  Weight: 111.57 kg

DRUGS (3)
  1. ADEMPAS [Suspect]
     Active Substance: RIOCIGUAT
     Indication: PULMONARY HYPERTENSION
     Dosage: 0.5 MG, TID
     Route: 048
     Dates: end: 20160915
  2. NORVASC [Concomitant]
     Active Substance: AMLODIPINE BESYLATE
     Dosage: UNK
  3. ADEMPAS [Suspect]
     Active Substance: RIOCIGUAT
     Indication: PULMONARY HYPERTENSION
     Dosage: UNK
     Dates: start: 20160823

REACTIONS (6)
  - Weight increased [Unknown]
  - Diarrhoea [Recovered/Resolved]
  - Oedema [Unknown]
  - Dizziness [Recovered/Resolved]
  - Weight increased [None]
  - Headache [Recovered/Resolved]
